FAERS Safety Report 5022229-4 (Version None)
Quarter: 2006Q2

REPORT INFORMATION
  Report Type: 
  Country: None (occurrence: None)
  Receive Date: 20060609
  Receipt Date: 20060322
  Transmission Date: 20061013
  Serious: Yes (Death, Other)
  Sender: FDA-Public Use
  Company Number: PHFR2006GB01202

PATIENT
  Age: 48 Year
  Sex: Male

DRUGS (1)
  1. TRILEPTAL [Suspect]
     Indication: EPILEPSY
     Route: 065

REACTIONS (3)
  - CARDIOMEGALY [None]
  - CORONARY ARTERY DISEASE [None]
  - SUDDEN DEATH [None]
